FAERS Safety Report 12631935 (Version 2)
Quarter: 2016Q3

REPORT INFORMATION
  Report Type: Spontaneous
  Country: US (occurrence: US)
  Receive Date: 20160808
  Receipt Date: 20160808
  Transmission Date: 20161109
  Serious: No
  Sender: FDA-Public Use
  Company Number: US-BEH-2016061463

PATIENT
  Sex: Female
  Weight: 51 kg

DRUGS (17)
  1. ADDERALL [Concomitant]
     Active Substance: AMPHETAMINE ASPARTATE\AMPHETAMINE SULFATE\DEXTROAMPHETAMINE SACCHARATE\DEXTROAMPHETAMINE SULFATE
  2. OXAZEPAM. [Concomitant]
     Active Substance: OXAZEPAM
  3. DIPHENHYDRAMINE. [Concomitant]
     Active Substance: DIPHENHYDRAMINE
  4. PREDNISONE. [Concomitant]
     Active Substance: PREDNISONE
  5. EPIPEN [Concomitant]
     Active Substance: EPINEPHRINE
  6. BACTROBAN [Concomitant]
     Active Substance: MUPIROCIN\MUPIROCIN CALCIUM
  7. TUMS [Concomitant]
     Active Substance: CALCIUM CARBONATE
  8. PLAQUENIL [Concomitant]
     Active Substance: HYDROXYCHLOROQUINE SULFATE
  9. ACETAMINOPHEN. [Concomitant]
     Active Substance: ACETAMINOPHEN
  10. VITAMIN D [Concomitant]
     Active Substance: CHOLECALCIFEROL
  11. FLUCONAZOLE. [Concomitant]
     Active Substance: FLUCONAZOLE
  12. CALCIUM-MAGNESIUM [Concomitant]
     Active Substance: CALCIUM\MAGNESIUM
  13. AMOXICILLIN. [Concomitant]
     Active Substance: AMOXICILLIN
  14. HIZENTRA [Suspect]
     Active Substance: HUMAN IMMUNOGLOBULIN G
     Indication: HYPOGAMMAGLOBULINAEMIA
     Route: 058
  15. FOLIC ACID. [Concomitant]
     Active Substance: FOLIC ACID
  16. METHOTREXATE. [Concomitant]
     Active Substance: METHOTREXATE
  17. PROAIR HFA [Concomitant]
     Active Substance: ALBUTEROL SULFATE

REACTIONS (1)
  - Gastrointestinal disorder [Unknown]
